FAERS Safety Report 15073995 (Version 1)
Quarter: 2018Q2

REPORT INFORMATION
  Report Type: Spontaneous
  Country: US (occurrence: US)
  Receive Date: 20180627
  Receipt Date: 20180627
  Transmission Date: 20180711
  Serious: Yes (Other)
  Sender: FDA-Public Use
  Company Number: US-BAYER-2018-118912

PATIENT
  Age: 27 Year
  Sex: Female

DRUGS (1)
  1. MIRENA [Suspect]
     Active Substance: LEVONORGESTREL
     Dosage: 20 MCG/24HR, CONT
     Route: 015
     Dates: start: 20150911, end: 20170329

REACTIONS (5)
  - Headache [None]
  - Nausea [None]
  - Papilloedema [None]
  - Intracranial pressure increased [None]
  - Visual impairment [None]

NARRATIVE: CASE EVENT DATE: 20170327
